FAERS Safety Report 4869617-4 (Version None)
Quarter: 2005Q4

REPORT INFORMATION
  Report Type: 
  Country: None (occurrence: None)
  Receive Date: 20051227
  Receipt Date: 20051212
  Transmission Date: 20060501
  Serious: Yes (Hospitalization, Other)
  Sender: FDA-Public Use
  Company Number: S05-FIN-05711-01

PATIENT
  Age: 41 Year
  Sex: Male

DRUGS (15)
  1. LERCANIDIPINE HYDROCHLORIDE [Suspect]
     Indication: HYPERTENSION
     Dosage: 10 MG QD PO
     Route: 048
     Dates: start: 20051002, end: 20051014
  2. LERCANIDIPINE HYDROCHLORIDE [Suspect]
     Indication: HYPERTENSION
     Dosage: 20 MG QD PO
     Route: 048
     Dates: start: 20050920, end: 20051001
  3. LERCANIDIPINE HYDROCHLORIDE [Suspect]
     Indication: HYPERTENSION
     Dosage: 10 MG QD PO
     Route: 048
     Dates: start: 20050818, end: 20050919
  4. TACROLIMUS [Concomitant]
  5. CELLCEPT [Concomitant]
  6. MEDROL [Concomitant]
  7. COTRIM [Concomitant]
  8. PANTOPRAZOLE SODIUM [Concomitant]
  9. SELECTOL (CELIPROLOL HYDROCHLORIDE) [Concomitant]
  10. CALCICHEW (CALCIUM  CARBONATE) [Concomitant]
  11. ASPIRIN [Concomitant]
  12. LIPITOR [Concomitant]
  13. LANTUS [Concomitant]
  14. NOVORAPID (INSULIN ASPART) [Concomitant]
  15. CANDESARTAN [Concomitant]

REACTIONS (3)
  - C-REACTIVE PROTEIN INCREASED [None]
  - IMMUNOSUPPRESSANT DRUG LEVEL INCREASED [None]
  - PYREXIA [None]
